FAERS Safety Report 4840563-5 (Version None)
Quarter: 2005Q4

REPORT INFORMATION
  Report Type: 
  Country: None (occurrence: None)
  Receive Date: 20051130
  Receipt Date: 20051018
  Transmission Date: 20060501
  Serious: No
  Sender: FDA-Public Use
  Company Number: US-BRISTOL-MYERS SQUIBB COMPANY-13148291

PATIENT
  Age: 55 Year
  Sex: Male

DRUGS (3)
  1. ERBITUX [Suspect]
     Indication: NEOPLASM MALIGNANT
     Route: 042
  2. BENADRYL [Concomitant]
     Indication: PREMEDICATION
  3. DEXAMETHASONE [Concomitant]
     Indication: PREMEDICATION

REACTIONS (1)
  - RASH [None]
